FAERS Safety Report 6761455-0 (Version None)
Quarter: 2010Q2

REPORT INFORMATION
  Report Type: 
  Country: None (occurrence: None)
  Receive Date: 20100608
  Receipt Date: 20100528
  Transmission Date: 20101027
  Serious: Yes (Death)
  Sender: FDA-Public Use
  Company Number: DE-ROCHE-707645

PATIENT
  Sex: Male
  Weight: 92 kg

DRUGS (1)
  1. CAPECITABINE [Suspect]
     Indication: DRUG USE FOR UNKNOWN INDICATION
     Dosage: LAST ADMINISTRATION PRIOR TO THE EVENT TOOK PLACE ON 14-APR-2010
     Route: 065
     Dates: start: 20100312

REACTIONS (1)
  - CEREBROVASCULAR ACCIDENT [None]
